FAERS Safety Report 10977857 (Version 1)
Quarter: 2015Q1

REPORT INFORMATION
  Report Type: Spontaneous
  Country: US (occurrence: None)
  Receive Date: 20150226
  Receipt Date: 20150226
  Transmission Date: 20150721
  Serious: No
  Sender: FDA-Public Use
  Company Number: TPA2009A01907

PATIENT
  Age: 49 Year
  Sex: Male
  Weight: 129.91 kg

DRUGS (11)
  1. ASPIRIN EC (ACETYLSLICYLIC ACID) [Concomitant]
  2. NIFEDIPINE. [Concomitant]
     Active Substance: NIFEDIPINE
  3. LEVOTHYROXINE [Concomitant]
     Active Substance: LEVOTHYROXINE
  4. ULORIC [Suspect]
     Active Substance: FEBUXOSTAT
     Indication: GOUT
     Dosage: 40 MG, 1 IN 1 D, PER ORAL
     Route: 048
     Dates: start: 20090615, end: 20090617
  5. COLCHICINE EC (COLCHICINE) [Concomitant]
  6. LISINOPRIL. [Concomitant]
     Active Substance: LISINOPRIL
  7. SIMVASTATIN. [Concomitant]
     Active Substance: SIMVASTATIN
  8. FUROSEMIDE. [Concomitant]
     Active Substance: FUROSEMIDE
  9. PREDNISONE. [Concomitant]
     Active Substance: PREDNISONE
  10. OMEPRAZOLE. [Concomitant]
     Active Substance: OMEPRAZOLE
  11. TERAZOSIN [Concomitant]
     Active Substance: TERAZOSIN\TERAZOSIN HYDROCHLORIDE

REACTIONS (4)
  - Diarrhoea [None]
  - Rash maculo-papular [None]
  - Rectal haemorrhage [None]
  - Contusion [None]

NARRATIVE: CASE EVENT DATE: 200906
